FAERS Safety Report 15645022 (Version 1)
Quarter: 2018Q4

REPORT INFORMATION
  Report Type: Other
  Country: GR (occurrence: GR)
  Receive Date: 20181121
  Receipt Date: 20181121
  Transmission Date: 20190205
  Serious: Yes (Death, Life-Threatening, Hospitalization, Disabling)
  Sender: FDA-Public Use
  Company Number: GR-NOSTRUM LABORATORIES, INC.-2059170

PATIENT
  Age: 78 Year
  Sex: Female

DRUGS (2)
  1. MORPHINE SULFATE. [Suspect]
     Active Substance: MORPHINE SULFATE
     Indication: ANAESTHESIA
     Route: 008
  2. ROPIVACAINE HCL [Concomitant]
     Active Substance: ROPIVACAINE HYDROCHLORIDE
     Route: 008

REACTIONS (3)
  - Paraplegia [Fatal]
  - Anterior spinal artery syndrome [Fatal]
  - Hypotension [Recovered/Resolved with Sequelae]
